FAERS Safety Report 19728466 (Version 1)
Quarter: 2021Q3

REPORT INFORMATION
  Report Type: Report from Study
  Country: None (occurrence: US)
  Receive Date: 20210820
  Receipt Date: 20210820
  Transmission Date: 20211014
  Serious: Yes (Other)
  Sender: FDA-Public Use
  Company Number: US-ABBVIE-21K-163-3997996-00

PATIENT
  Sex: Male
  Weight: 104.42 kg

DRUGS (4)
  1. HUMIRA [Suspect]
     Active Substance: ADALIMUMAB
     Indication: RHEUMATOID ARTHRITIS
     Dosage: CITRATE FREE
     Route: 058
     Dates: start: 2020, end: 20210716
  2. HUMIRA [Suspect]
     Active Substance: ADALIMUMAB
     Indication: UVEITIS
     Dosage: CITRATE FREE
     Route: 058
     Dates: start: 20210806
  3. MODERNA COVID?19 VACCINE [Concomitant]
     Active Substance: CX-024414
     Dosage: MODERNA
     Route: 030
  4. MODERNA COVID?19 VACCINE [Concomitant]
     Active Substance: CX-024414
     Indication: COVID-19 IMMUNISATION
     Dosage: MODERNA
     Route: 030

REACTIONS (2)
  - Arthralgia [Not Recovered/Not Resolved]
  - Osteoarthritis [Recovering/Resolving]

NARRATIVE: CASE EVENT DATE: 2021
